FAERS Safety Report 6058925-X (Version None)
Quarter: 2009Q1

REPORT INFORMATION
  Report Type: 
  Country: None (occurrence: None)
  Receive Date: 20090130
  Receipt Date: 20090120
  Transmission Date: 20090719
  Serious: Yes (Other)
  Sender: FDA-Public Use
  Company Number: US-PFIZER INC-2009157775

PATIENT
  Sex: Female
  Weight: 59.874 kg

DRUGS (4)
  1. TIKOSYN [Suspect]
     Indication: ATRIAL FIBRILLATION
     Dosage: 500 UG, 2X/DAY
     Dates: start: 20041201
  2. ATACAND [Concomitant]
     Indication: HYPERTENSION
     Dosage: UNK
  3. PREVACID [Concomitant]
     Indication: GASTROOESOPHAGEAL REFLUX DISEASE
     Dosage: UNK
  4. CUMADIN [Concomitant]
     Dosage: UNK

REACTIONS (7)
  - EYE INFECTION [None]
  - INFLUENZA [None]
  - LOWER RESPIRATORY TRACT INFECTION BACTERIAL [None]
  - NASOPHARYNGITIS [None]
  - PNEUMONIA [None]
  - VIRAL INFECTION [None]
  - WHITE BLOOD CELL COUNT INCREASED [None]
